FAERS Safety Report 16534930 (Version 1)
Quarter: 2019Q3

REPORT INFORMATION
  Report Type: Spontaneous
  Country: CN (occurrence: CN)
  Receive Date: 20190705
  Receipt Date: 20190705
  Transmission Date: 20191004
  Serious: Yes (Other)
  Sender: FDA-Public Use
  Company Number: CN-MALLINCKRODT-T201904776

PATIENT
  Age: 88 Year
  Sex: Male
  Weight: 85 kg

DRUGS (1)
  1. OXYCODONE/ACETAMINOPHEN [Suspect]
     Active Substance: ACETAMINOPHEN\OXYCODONE HYDROCHLORIDE
     Indication: BACK PAIN
     Dosage: 0.33 G, QD, ST
     Route: 048
     Dates: start: 20190606, end: 20190606

REACTIONS (3)
  - Chest discomfort [Recovered/Resolved]
  - Asthma [Recovered/Resolved]
  - Supraventricular tachycardia [Recovered/Resolved]

NARRATIVE: CASE EVENT DATE: 20190606
